FAERS Safety Report 8447219-0 (Version None)
Quarter: 2012Q2

REPORT INFORMATION
  Report Type: 
  Country: None (occurrence: None)
  Receive Date: 20120612
  Receipt Date: 20120531
  Transmission Date: 20120825
  Serious: Yes (Death, Life-Threatening, Hospitalization)
  Sender: FDA-Public Use
  Company Number: DSA_57708_2012

PATIENT
  Age: 79 Year
  Sex: Male

DRUGS (6)
  1. SUSTRATE [Concomitant]
  2. CARDIZEM [Suspect]
     Indication: PRODUCT USED FOR UNKNOWN INDICATION
     Dosage: (60 MG BID ORAL)
     Route: 048
     Dates: start: 20120301, end: 20120423
  3. DIURETICS [Concomitant]
  4. FORMOTEROL FUMARATE [Concomitant]
  5. SPIRIVA [Suspect]
     Indication: EMPHYSEMA
     Dosage: (2.5 UG, DAILY RESPIRATORY (INHALATION))
     Route: 055
     Dates: start: 20100101, end: 20120423
  6. AAS INFANTIL [Concomitant]

REACTIONS (8)
  - THROMBOSIS [None]
  - MULTI-ORGAN FAILURE [None]
  - CONDITION AGGRAVATED [None]
  - DIABETES MELLITUS [None]
  - EMPHYSEMA [None]
  - DYSPNOEA [None]
  - COMA [None]
  - PNEUMONIA [None]
